FAERS Safety Report 7281154 (Version 2)
Quarter: 2013Q3

REPORT INFORMATION
  Report Type: Report from Study
  Country: DE (occurrence: DE)
  Receive Date: 20100217
  Receipt Date: 20130701
  Transmission Date: 20140515
  Serious: Yes (Hospitalization)
  Sender: FDA-Public Use
  Company Number: DE-ROCHE-685516

PATIENT
  Age: 23 Year
  Sex: Female
  Weight: 95 kg

DRUGS (6)
  1. PEG-INTERFERON ALFA 2A [Suspect]
     Indication: CHRONIC HEPATITIS C
     Route: 058
  2. RIBAVIRIN [Suspect]
     Indication: CHRONIC HEPATITIS C
     Route: 048
  3. VALIQUID [Concomitant]
     Route: 048
  4. RIVOTRIL [Concomitant]
     Route: 048
  5. MIRTAZAPIN [Concomitant]
     Route: 048
  6. HALOPERIDOL [Concomitant]
     Route: 048

REACTIONS (1)
  - Drug dependence [Recovered/Resolved]
